FAERS Safety Report 6839445-9 (Version None)
Quarter: 2010Q3

REPORT INFORMATION
  Report Type: 
  Country: None (occurrence: None)
  Receive Date: 20100714
  Receipt Date: 20090519
  Transmission Date: 20110219
  Serious: No
  Sender: FDA-Public Use
  Company Number: A0785046A

PATIENT
  Age: 30 Year
  Sex: Female

DRUGS (2)
  1. FLOVENT [Suspect]
     Indication: ASTHMA
     Dosage: 2PUFF TWICE PER DAY
     Route: 055
     Dates: start: 20090501
  2. ALBUTEROL [Concomitant]

REACTIONS (4)
  - COUGH [None]
  - LARYNGITIS [None]
  - OROPHARYNGEAL PAIN [None]
  - THROAT IRRITATION [None]
